FAERS Safety Report 7784892-4 (Version None)
Quarter: 2011Q3

REPORT INFORMATION
  Report Type: 
  Country: None (occurrence: None)
  Receive Date: 20110928
  Receipt Date: 20100903
  Transmission Date: 20111222
  Serious: Yes (Other)
  Sender: FDA-Public Use
  Company Number: US-BAYER-201035376NA

PATIENT
  Sex: Female

DRUGS (1)
  1. MIRENA [Suspect]
     Indication: CONTRACEPTION
     Dosage: 20 MCG/24HR, CONT
     Route: 015
     Dates: start: 20080501

REACTIONS (22)
  - FEAR [None]
  - CRYING [None]
  - BACK PAIN [None]
  - VULVOVAGINAL DISORDER [None]
  - ABDOMINAL DISTENSION [None]
  - LOSS OF LIBIDO [None]
  - MENORRHAGIA [None]
  - OVARIAN CYST [None]
  - ABDOMINAL PAIN [None]
  - ANXIETY [None]
  - DEPRESSION [None]
  - DYSPAREUNIA [None]
  - MEDICAL DEVICE COMPLICATION [None]
  - NAUSEA [None]
  - RETCHING [None]
  - DYSFUNCTIONAL UTERINE BLEEDING [None]
  - MENSTRUATION IRREGULAR [None]
  - PANIC REACTION [None]
  - FEELING ABNORMAL [None]
  - VULVOVAGINAL INJURY [None]
  - HEADACHE [None]
  - MOOD SWINGS [None]
